FAERS Safety Report 8660125 (Version 4)
Quarter: 2012Q4

REPORT INFORMATION
  Report Type: 
  Country: US (occurrence: US)
  Receive Date: 20120711
  Receipt Date: 20120910
  Transmission Date: 20130627
  Serious: Yes (Other)
  Sender: FDA-Public Use
  Company Number: US-PFIZER INC-2012163108

PATIENT
  Age: 52 Year
  Sex: Female

DRUGS (2)
  1. GEODON [Suspect]
     Dosage: 80 mg 2 ea at bedtime
     Route: 048
     Dates: start: 20120621
  2. VITAMIN E [Concomitant]
     Dosage: 400 IU, 1 ea, 2x/day
     Route: 048
     Dates: start: 20120621

REACTIONS (4)
  - Bipolar I disorder [Unknown]
  - Psychotic behaviour [Unknown]
  - Hypochondriasis [Unknown]
  - Body dysmorphic disorder [Unknown]
